FAERS Safety Report 4666824-0 (Version None)
Quarter: 2005Q2

REPORT INFORMATION
  Report Type: 
  Country: None (occurrence: None)
  Receive Date: 20050519
  Receipt Date: 20050119
  Transmission Date: 20051028
  Serious: Yes (Hospitalization, Disabling, Other)
  Sender: FDA-Public Use
  Company Number: US-MERCK-0501USA03298

PATIENT
  Age: 58 Year
  Sex: Male

DRUGS (5)
  1. VIOXX [Suspect]
     Indication: ARTHRITIS
     Route: 048
     Dates: start: 19990101, end: 20040101
  2. COUMADIN [Concomitant]
     Route: 065
  3. TENORMIN [Concomitant]
     Route: 065
  4. PRAVACHOL [Concomitant]
     Route: 065
  5. ASPIRIN [Concomitant]
     Route: 065
     Dates: start: 19951001, end: 20050201

REACTIONS (24)
  - ACCELERATED HYPERTENSION [None]
  - ANGINA PECTORIS [None]
  - ANXIETY [None]
  - CHEST PAIN [None]
  - CORONARY ARTERY OCCLUSION [None]
  - DIVERTICULITIS [None]
  - DIVERTICULUM [None]
  - DIZZINESS [None]
  - EPIGASTRIC DISCOMFORT [None]
  - GASTROENTERITIS [None]
  - GASTROINTESTINAL HAEMORRHAGE [None]
  - HEADACHE [None]
  - HIATUS HERNIA [None]
  - HYPERCHOLESTEROLAEMIA [None]
  - INTERVERTEBRAL DISC PROTRUSION [None]
  - LUMBAR RADICULOPATHY [None]
  - MITRAL VALVE INCOMPETENCE [None]
  - MITRAL VALVE PROLAPSE [None]
  - MYOCARDIAL INFARCTION [None]
  - OSTEOARTHRITIS [None]
  - PAIN [None]
  - PLATELET DISORDER [None]
  - RECTAL POLYP [None]
  - URINARY RETENTION [None]
